FAERS Safety Report 5275380-8 (Version None)
Quarter: 2007Q1

REPORT INFORMATION
  Report Type: 
  Country: None (occurrence: None)
  Receive Date: 20070322
  Receipt Date: 20070322
  Transmission Date: 20070707
  Serious: Yes (Hospitalization)
  Sender: FDA-Public Use
  Company Number: None

PATIENT
  Age: 69 Year
  Sex: Male
  Weight: 67.1 kg

DRUGS (3)
  1. GEMCITABINE [Suspect]
     Indication: LUNG NEOPLASM MALIGNANT
     Dosage: 1000MG D1 + 8 Q 3 WEEKS IV
     Route: 042
     Dates: start: 20070312
  2. PS341 [Suspect]
     Dosage: 2.3MG D1, 4, 8, 11 Q3WEEKS IV
     Route: 042
     Dates: start: 20070312
  3. PS341 [Suspect]
     Dosage: 2.3MG D1, 4, 8, 11 Q3WEEKS IV
     Route: 042
     Dates: start: 20070315

REACTIONS (3)
  - HYPERGLYCAEMIA [None]
  - INSULIN-REQUIRING TYPE II DIABETES MELLITUS [None]
  - SEPSIS [None]
